FAERS Safety Report 11444859 (Version 1)
Quarter: 2015Q3

REPORT INFORMATION
  Report Type: Spontaneous
  Country: US (occurrence: US)
  Receive Date: 20150902
  Receipt Date: 20150902
  Transmission Date: 20151125
  Serious: No
  Sender: FDA-Public Use
  Company Number: US-FRESENIUS KABI-FK201403436

PATIENT
  Sex: Female
  Weight: 63.56 kg

DRUGS (3)
  1. BENZATROPINE [Concomitant]
     Active Substance: BENZTROPINE
     Indication: PRODUCT USED FOR UNKNOWN INDICATION
  2. FLUPHENAZINE [Suspect]
     Active Substance: FLUPHENAZINE
     Indication: PRODUCT USED FOR UNKNOWN INDICATION
  3. FLUPHENAZINE DECANOATE INJECTION, USP (FLUPHENAZINE DECANOATE) (FLUPHENAZINE DECANOATE) [Suspect]
     Active Substance: FLUPHENAZINE DECANOATE
     Indication: SCHIZOPHRENIA, PARANOID TYPE
     Route: 030

REACTIONS (1)
  - Urticaria [Unknown]
